FAERS Safety Report 5442894-7 (Version None)
Quarter: 2007Q3

REPORT INFORMATION
  Report Type: 
  Country: None (occurrence: None)
  Receive Date: 20070831
  Receipt Date: 20070831
  Transmission Date: 20080115
  Serious: Yes (Other)
  Sender: FDA-Public Use
  Company Number: None

PATIENT
  Age: 59 Year
  Sex: Male
  Weight: 65.3 kg

DRUGS (5)
  1. HYDROCHLOROTHIAZIDE [Suspect]
     Indication: HYPERTENSION
     Dosage: 1 TAB QD PO
     Route: 048
  2. TRUVADA [Suspect]
     Indication: HIV INFECTION
     Dosage: 1 TAB QD PO
     Route: 048
  3. KALETRA [Concomitant]
  4. RALTEGRAVIR POTASSIUM [Concomitant]
  5. VALPROIC ACID [Concomitant]

REACTIONS (1)
  - HYPOPHOSPHATAEMIA [None]
